FAERS Safety Report 21911282 (Version 1)
Quarter: 2023Q1

REPORT INFORMATION
  Report Type: Spontaneous
  Country: US (occurrence: None)
  Receive Date: 20230125
  Receipt Date: 20230125
  Transmission Date: 20230418
  Serious: No
  Sender: FDA-Public Use
  Company Number: None

PATIENT
  Age: 44 Year
  Sex: Female
  Weight: 71.55 kg

DRUGS (3)
  1. BETADINE [Suspect]
     Active Substance: POVIDONE-IODINE
     Indication: Preoperative care
     Dates: start: 20230123, end: 20230123
  2. Hydrocodone-acetaminophen 5-325 [Concomitant]
  3. Advil 200mg [Concomitant]

REACTIONS (2)
  - Rash vesicular [None]
  - Skin tightness [None]

NARRATIVE: CASE EVENT DATE: 20230124
